FAERS Safety Report 9391207 (Version 2)
Quarter: 2013Q3

REPORT INFORMATION
  Report Type: Report from Study
  Country: US (occurrence: US)
  Receive Date: 20130709
  Receipt Date: 20130717
  Transmission Date: 20140515
  Serious: Yes (Hospitalization)
  Sender: FDA-Public Use
  Company Number: US-JNJFOC-20130701691

PATIENT
  Age: 13 Year
  Sex: Male
  Weight: 30.7 kg

DRUGS (12)
  1. REMICADE [Suspect]
     Indication: CROHN^S DISEASE
     Route: 042
     Dates: start: 20090602, end: 20100216
  2. HUMIRA [Suspect]
     Indication: CROHN^S DISEASE
     Route: 065
     Dates: start: 20130602
  3. HUMIRA [Suspect]
     Indication: CROHN^S DISEASE
     Route: 065
     Dates: start: 20100415
  4. 5-ASA [Concomitant]
     Route: 048
  5. 6-MERCAPTOPURINE [Concomitant]
     Route: 065
  6. OMEPRAZOLE [Concomitant]
     Route: 065
  7. LORATADINE [Concomitant]
     Route: 065
  8. MIRALAX [Concomitant]
     Route: 065
  9. CHOLECALCIFEROL [Concomitant]
     Route: 065
  10. HYOSCYAMINE [Concomitant]
     Route: 065
  11. BACTROBAN [Concomitant]
     Route: 061
  12. HYDROCORTISONE [Concomitant]
     Route: 061

REACTIONS (1)
  - Dehydration [Recovered/Resolved]
